FAERS Safety Report 5844395-0 (Version None)
Quarter: 2008Q3

REPORT INFORMATION
  Report Type: 
  Country: None (occurrence: None)
  Receive Date: 20080813
  Receipt Date: 20080807
  Transmission Date: 20090109
  Serious: Yes (Death)
  Sender: FDA-Public Use
  Company Number: GB-MERCK-0712GBR00005

PATIENT
  Age: 78 Year
  Sex: Female

DRUGS (9)
  1. ZOCOR [Suspect]
     Indication: CARDIOVASCULAR EVENT PROPHYLAXIS
     Route: 048
     Dates: end: 20070912
  2. AMITRIPTYLINE HYDROCHLORIDE [Concomitant]
     Route: 065
  3. ASPIRIN [Concomitant]
     Indication: CARDIOVASCULAR EVENT PROPHYLAXIS
     Route: 048
  4. BENDROFLUMETHIAZIDE [Concomitant]
     Indication: HYPERTENSION
     Route: 048
  5. GLIMEPIRIDE [Concomitant]
     Indication: DIABETES MELLITUS
     Route: 048
  6. METFORMIN [Concomitant]
     Indication: DIABETES MELLITUS
     Route: 048
  7. BECLOMETHASONE DIPROPIONATE [Concomitant]
     Route: 065
  8. ALBUTEROL SULFATE [Concomitant]
     Route: 065
  9. LEVOTHYROXINE SODIUM [Concomitant]
     Route: 065

REACTIONS (4)
  - BRONCHOPNEUMONIA [None]
  - CARDIAC FAILURE [None]
  - DYSPNOEA [None]
  - HAEMOPTYSIS [None]
